FAERS Safety Report 9781040 (Version 2)
Quarter: 2013Q4

REPORT INFORMATION
  Report Type: Report from Study
  Country: JP (occurrence: JP)
  Receive Date: 20131224
  Receipt Date: 20131224
  Transmission Date: 20140711
  Serious: Yes (Hospitalization, Other)
  Sender: FDA-Public Use
  Company Number: JP-SA-THYM-1003901

PATIENT
  Age: 63 Year
  Sex: Male
  Weight: 59 kg

DRUGS (19)
  1. THYMOGLOBULINE [Suspect]
     Indication: APLASTIC ANAEMIA
     Dosage: 120 MG, QD
     Route: 065
     Dates: start: 20121210, end: 20121210
  2. THYMOGLOBULINE [Suspect]
     Indication: APLASTIC ANAEMIA
     Dosage: 220 MG, QD
     Route: 065
     Dates: start: 20121211, end: 20121214
  3. NEORAL [Suspect]
     Indication: APLASTIC ANAEMIA
     Dosage: UNK
     Route: 065
     Dates: start: 20121112
  4. PRIDOL [Suspect]
     Indication: PROPHYLAXIS
     Dosage: UNK
     Route: 065
     Dates: start: 20121210, end: 20121214
  5. PREDNISOLONE [Suspect]
     Indication: PROPHYLAXIS
     Dosage: UNK
     Route: 065
     Dates: start: 20121221, end: 20130107
  6. PREDNISOLONE [Suspect]
     Indication: COLITIS
     Dosage: UNK
     Route: 065
     Dates: start: 20121221, end: 20130107
  7. PREDNISOLONE [Suspect]
     Indication: PROPHYLAXIS
     Dosage: UNK
     Route: 065
     Dates: start: 20130522
  8. PREDNISOLONE [Suspect]
     Indication: COLITIS
     Dosage: UNK
     Route: 065
     Dates: start: 20130522
  9. DAIPHEN [Concomitant]
     Indication: ANTIFUNGAL PROPHYLAXIS
     Dosage: UNK
     Dates: start: 20121126
  10. VALTREX [Concomitant]
     Indication: ANTIVIRAL PROPHYLAXIS
     Dosage: UNK
     Dates: start: 20121208
  11. PRIMOBOLAN [Concomitant]
     Indication: APLASTIC ANAEMIA
     Dosage: UNK
     Dates: start: 20121026
  12. PROMACID [Concomitant]
     Indication: PROPHYLAXIS AGAINST GASTROINTESTINAL ULCER
     Dosage: UNK
     Dates: start: 20121025
  13. MAGMITT [Concomitant]
     Indication: CONSTIPATION
     Dosage: UNK
     Dates: start: 20121015
  14. FLUCONAZOLE [Concomitant]
     Indication: ANTIFUNGAL PROPHYLAXIS
     Dosage: UNK
     Dates: start: 20121217, end: 20130426
  15. FLUCONAZOLE [Concomitant]
     Indication: ANTIFUNGAL PROPHYLAXIS
     Dosage: UNK
     Dates: start: 20130604
  16. BIO THREE [Concomitant]
     Indication: DIARRHOEA
     Dosage: UNK
     Dates: start: 20130112
  17. BERBERINE HYDROCHLORIDE/HERBAL EXTRACT NOS [Concomitant]
     Indication: DIARRHOEA
     Dosage: UNK
     Dates: start: 20130118
  18. CEFCAPENE [Concomitant]
     Indication: PROPHYLAXIS
     Dosage: UNK
     Dates: start: 20130129, end: 20130204
  19. ELENTAL [Concomitant]
     Indication: COLITIS
     Dosage: UNK
     Dates: start: 20130509

REACTIONS (13)
  - Enterocolitis [Recovered/Resolved]
  - Febrile neutropenia [Recovered/Resolved]
  - Oral fungal infection [Recovered/Resolved]
  - Thrombocytopenia [Recovered/Resolved]
  - Lymphopenia [Recovered/Resolved]
  - C-reactive protein increased [Recovered/Resolved]
  - Generalised oedema [Recovered/Resolved]
  - Stomatitis [Recovered/Resolved]
  - Cytomegalovirus test positive [Recovered/Resolved]
  - Hiccups [Recovered/Resolved]
  - Pyrexia [Recovered/Resolved]
  - Pyrexia [Recovered/Resolved]
  - Pharyngitis [Recovered/Resolved]
